FAERS Safety Report 14175903 (Version 1)
Quarter: 2017Q4

REPORT INFORMATION
  Report Type: Spontaneous
  Country: US (occurrence: None)
  Receive Date: 20171109
  Receipt Date: 20171109
  Transmission Date: 20180321
  Serious: Yes (Hospitalization)
  Sender: FDA-Public Use
  Company Number: None

PATIENT
  Age: 58 Year
  Sex: Male
  Weight: 113.4 kg

DRUGS (1)
  1. USTEKINUMAB [Suspect]
     Active Substance: USTEKINUMAB

REACTIONS (4)
  - Staphylococcal bacteraemia [None]
  - Sepsis [None]
  - Psoriatic arthropathy [None]
  - Condition aggravated [None]

NARRATIVE: CASE EVENT DATE: 20171106
